FAERS Safety Report 8261473-X (Version None)
Quarter: 2012Q2

REPORT INFORMATION
  Report Type: 
  Country: None (occurrence: None)
  Receive Date: 20120405
  Receipt Date: 20120327
  Transmission Date: 20120825
  Serious: Yes (Other)
  Sender: FDA-Public Use
  Company Number: US-PFIZER INC-2012078777

PATIENT
  Sex: Female
  Weight: 74.83 kg

DRUGS (2)
  1. LIPITOR [Suspect]
     Indication: BLOOD CHOLESTEROL INCREASED
     Dosage: 80 MG, ONCE A DAY
     Route: 048
  2. LOPRESSOR [Concomitant]
     Dosage: UNK

REACTIONS (5)
  - HYPERTENSION [None]
  - FAECES DISCOLOURED [None]
  - GASTROOESOPHAGEAL REFLUX DISEASE [None]
  - MEMORY IMPAIRMENT [None]
  - HAEMORRHAGE [None]
